FAERS Safety Report 13697699 (Version 1)
Quarter: 2017Q2

REPORT INFORMATION
  Report Type: Spontaneous
  Country: FR (occurrence: FR)
  Receive Date: 20170628
  Receipt Date: 20170628
  Transmission Date: 20170830
  Serious: Yes (Hospitalization)
  Sender: FDA-Public Use
  Company Number: FR-JNJFOC-20170619234

PATIENT
  Age: 25 Year
  Sex: Female

DRUGS (4)
  1. LOXAPAC [Concomitant]
     Active Substance: LOXAPINE SUCCINATE
     Dosage: LONG TERM TREATMENT
     Route: 065
  2. LEPONEX [Concomitant]
     Active Substance: CLOZAPINE
     Dosage: LONG TERM TREATMENT
     Route: 065
  3. RISPERDAL [Suspect]
     Active Substance: RISPERIDONE
     Indication: SCHIZOPHRENIA
     Dosage: LONG TERM TREATMENT
     Route: 048
     Dates: end: 20170612
  4. LEPTICUR [Concomitant]
     Active Substance: TROPATEPINE HYDROCHLORIDE
     Dosage: LONG TERM TREATMENT
     Route: 065

REACTIONS (2)
  - Pulmonary embolism [Recovering/Resolving]
  - Deep vein thrombosis [Unknown]

NARRATIVE: CASE EVENT DATE: 20170609
